FAERS Safety Report 8594778-3 (Version None)
Quarter: 2012Q3

REPORT INFORMATION
  Report Type: 
  Country: None (occurrence: None)
  Receive Date: 20120815
  Receipt Date: 20120810
  Transmission Date: 20120928
  Serious: Yes (Hospitalization)
  Sender: FDA-Public Use
  Company Number: US-ABBOTT-12P-163-0962563-00

PATIENT
  Sex: Female
  Weight: 104.42 kg

DRUGS (6)
  1. SIMCOR [Suspect]
     Indication: BLOOD TRIGLYCERIDES INCREASED
     Dosage: 500/20
     Dates: start: 20110322, end: 20120530
  2. PROTONIX [Concomitant]
     Indication: GASTROOESOPHAGEAL REFLUX DISEASE
  3. PLAVIX [Concomitant]
     Indication: PRODUCT USED FOR UNKNOWN INDICATION
  4. SIMCOR [Suspect]
     Indication: BLOOD CHOLESTEROL INCREASED
  5. RANOLAZINE [Concomitant]
     Indication: ANGINA PECTORIS
  6. TOPROL-XL [Concomitant]
     Indication: HYPERTENSION

REACTIONS (2)
  - MYOCARDIAL INFARCTION [None]
  - DEEP VEIN THROMBOSIS [None]
